FAERS Safety Report 7321268-8 (Version None)
Quarter: 2011Q1

REPORT INFORMATION
  Report Type: 
  Country: None (occurrence: None)
  Receive Date: 20110228
  Receipt Date: 20100401
  Transmission Date: 20110831
  Serious: Yes (Hospitalization)
  Sender: FDA-Public Use
  Company Number: US-PFIZER INC-2010017801

PATIENT
  Sex: Female
  Weight: 75.283 kg

DRUGS (2)
  1. GEODON [Suspect]
     Indication: BIPOLAR I DISORDER
     Dosage: 40MG IN MORNING AND 80MG IN EVENING
     Dates: start: 20100125
  2. KLONOPIN [Concomitant]
     Dosage: 0.5MG TWICE DAILY AND 1MG AT BEDTIME

REACTIONS (1)
  - DYSTONIA [None]
